FAERS Safety Report 6859600-1 (Version None)
Quarter: 2010Q3

REPORT INFORMATION
  Report Type: 
  Country: None (occurrence: None)
  Receive Date: 20100719
  Receipt Date: 20081201
  Transmission Date: 20110219
  Serious: No
  Sender: FDA-Public Use
  Company Number: US-PFIZER INC-2008014918

PATIENT
  Sex: Female
  Weight: 68.181 kg

DRUGS (7)
  1. CHANTIX [Suspect]
     Dosage: 0.5 MG, 1X/DAY
     Route: 048
     Dates: start: 20080205
  2. QUINAPRIL [Concomitant]
     Dosage: UNK
  3. SYNTHROID [Concomitant]
     Dosage: UNK
  4. GABAPENTIN [Concomitant]
     Dosage: 600 MG, 3X/DAY
  5. SIMVASTATIN [Concomitant]
     Dosage: UNK
  6. CELEBREX [Concomitant]
     Dosage: UNK
  7. ASTELIN [Concomitant]
     Dosage: UNK

REACTIONS (5)
  - DEPRESSION [None]
  - DIARRHOEA [None]
  - HEADACHE [None]
  - NAUSEA [None]
  - NERVOUSNESS [None]
